FAERS Safety Report 9720508 (Version 1)
Quarter: 2013Q4

REPORT INFORMATION
  Report Type: Spontaneous
  Country: FR (occurrence: FR)
  Receive Date: 20131129
  Receipt Date: 20131129
  Transmission Date: 20140711
  Serious: Yes (Other)
  Sender: FDA-Public Use
  Company Number: FR-JNJFOC-20131114696

PATIENT
  Age: 56 Year
  Sex: Male

DRUGS (1)
  1. RISPERDAL CONSTA LP [Suspect]
     Indication: PRODUCT USED FOR UNKNOWN INDICATION
     Route: 030
     Dates: start: 2008

REACTIONS (2)
  - Myocardial infarction [Unknown]
  - Treatment noncompliance [Unknown]
